FAERS Safety Report 19203612 (Version 7)
Quarter: 2022Q3

REPORT INFORMATION
  Report Type: Report from Study
  Country: US (occurrence: US)
  Receive Date: 20210430
  Receipt Date: 20220909
  Transmission Date: 20221026
  Serious: Yes (Other)
  Sender: FDA-Public Use
  Company Number: US-TAKEDA-US201934697

PATIENT
  Sex: Female
  Weight: 73.923 kg

DRUGS (25)
  1. HUMAN IMMUNOGLOBULIN G\HYALURONIDASE RECOMBINANT HUMAN [Suspect]
     Active Substance: HUMAN IMMUNOGLOBULIN G\HYALURONIDASE RECOMBINANT HUMAN
     Indication: Primary immunodeficiency syndrome
     Dosage: 35 GRAM, Q3WEEKS
     Route: 058
     Dates: start: 20170117
  2. HUMAN IMMUNOGLOBULIN G\HYALURONIDASE RECOMBINANT HUMAN [Suspect]
     Active Substance: HUMAN IMMUNOGLOBULIN G\HYALURONIDASE RECOMBINANT HUMAN
     Indication: Immunodeficiency
     Dosage: 40 GRAM, Q4WEEKS
     Route: 058
     Dates: start: 20220823
  3. HUMAN IMMUNOGLOBULIN G\HYALURONIDASE RECOMBINANT HUMAN [Suspect]
     Active Substance: HUMAN IMMUNOGLOBULIN G\HYALURONIDASE RECOMBINANT HUMAN
     Indication: Immunodeficiency common variable
     Dosage: 40 GRAM, Q4WEEKS
     Route: 065
  4. ALBUTEROL SULFATE [Concomitant]
     Active Substance: ALBUTEROL SULFATE
     Route: 065
  5. HYDROXYCHLOROQUINE SULFATE [Concomitant]
     Active Substance: HYDROXYCHLOROQUINE SULFATE
  6. SEREVENT DISKUS [Concomitant]
     Active Substance: SALMETEROL XINAFOATE
  7. PANTOPRAZOLE SODIUM [Concomitant]
     Active Substance: PANTOPRAZOLE SODIUM
  8. IRON [Concomitant]
     Active Substance: IRON
  9. OMEGA 9 FATTY ACIDS;OMEGA-3 FATTY ACIDS;OMEGA-6 FATTY ACIDS [Concomitant]
  10. CELECOXIB [Concomitant]
     Active Substance: CELECOXIB
  11. NASALCROM [Concomitant]
     Active Substance: CROMOLYN SODIUM
  12. SIMVASTATIN [Concomitant]
     Active Substance: SIMVASTATIN
  13. NASACORT [Concomitant]
     Active Substance: TRIAMCINOLONE ACETONIDE
  14. MUCINEX [Concomitant]
     Active Substance: GUAIFENESIN
  15. VITAMIN D3 [Concomitant]
     Active Substance: CHOLECALCIFEROL
  16. THERATEARS [Concomitant]
     Active Substance: CARBOXYMETHYLCELLULOSE SODIUM
  17. TOBRAMYCIN AND DEXAMETHASONE [Concomitant]
     Active Substance: DEXAMETHASONE\TOBRAMYCIN
  18. GAVISCON [Concomitant]
     Active Substance: ALUMINUM HYDROXIDE\MAGNESIUM CARBONATE
  19. FLUTICASONE PROPIONATE [Concomitant]
     Active Substance: FLUTICASONE PROPIONATE
  20. AMOXICILLIN [Concomitant]
     Active Substance: AMOXICILLIN
  21. VITAMINS [Concomitant]
     Active Substance: VITAMINS
  22. VITAMIN D [Concomitant]
     Active Substance: VITAMIN D NOS
  23. ACIPHEX [Concomitant]
     Active Substance: RABEPRAZOLE SODIUM
  24. AZELASTINE HYDROCHLORIDE [Concomitant]
     Active Substance: AZELASTINE HYDROCHLORIDE
  25. FEXOFENADINE HCL [Concomitant]
     Active Substance: FEXOFENADINE HYDROCHLORIDE

REACTIONS (11)
  - Systemic lupus erythematosus [Unknown]
  - Pulmonary congestion [Unknown]
  - Herpes zoster [Unknown]
  - Arthropod bite [Unknown]
  - Arthritis [Unknown]
  - Allergy to arthropod bite [Unknown]
  - Back pain [Unknown]
  - Headache [Recovered/Resolved]
  - Somnolence [Unknown]
  - Therapy interrupted [Recovered/Resolved]
  - Insurance issue [Recovered/Resolved]
